FAERS Safety Report 5920541-5 (Version None)
Quarter: 2008Q4

REPORT INFORMATION
  Report Type: 
  Country: None (occurrence: None)
  Receive Date: 20081015
  Receipt Date: 20081015
  Transmission Date: 20090506
  Serious: Yes (Other)
  Sender: FDA-Public Use
  Company Number: None

PATIENT
  Age: 54 Year
  Sex: Male
  Weight: 166.9237 kg

DRUGS (2)
  1. ARICEPT [Suspect]
     Indication: AMNESIA
     Dosage: NIGHTLY ONCE PO DAILY
     Route: 048
     Dates: start: 20080729, end: 20081013
  2. ARICEPT [Suspect]
     Indication: COGNITIVE DISORDER
     Dosage: NIGHTLY ONCE PO DAILY
     Route: 048
     Dates: start: 20080729, end: 20081013

REACTIONS (1)
  - PERSONALITY CHANGE [None]
